FAERS Safety Report 25284420 (Version 1)
Quarter: 2025Q2

REPORT INFORMATION
  Report Type: Spontaneous
  Country: US (occurrence: None)
  Receive Date: 20250508
  Receipt Date: 20250508
  Transmission Date: 20250716
  Serious: Yes (Other)
  Sender: FDA-CTU
  Company Number: None

PATIENT
  Age: 66 Year
  Sex: Female
  Weight: 73.125 kg

DRUGS (2)
  1. GAMUNEX-C [Suspect]
     Active Substance: HUMAN IMMUNOGLOBULIN G
     Indication: Hypogammaglobulinaemia
     Dosage: 50 ML WEEKLY SUBCUTANEOUS
     Route: 058
     Dates: start: 20230831, end: 20250218
  2. GAMUNEX [Suspect]
     Active Substance: HUMAN IMMUNOGLOBULIN G
     Indication: Hypogammaglobulinaemia
     Dosage: 100 ML WEEKLY SUBCUTANEOUS ?
     Route: 058
     Dates: start: 20230831

REACTIONS (1)
  - Infusion site erythema [None]

NARRATIVE: CASE EVENT DATE: 20250501
